FAERS Safety Report 6502780-8 (Version None)
Quarter: 2009Q4

REPORT INFORMATION
  Report Type: 
  Country: None (occurrence: None)
  Receive Date: 20091127
  Receipt Date: 20090827
  Transmission Date: 20100525
  Serious: No
  Sender: FDA-Public Use
  Company Number: 001620

PATIENT
  Age: 25 Year
  Sex: Male

DRUGS (3)
  1. LACOSAMIDE [Suspect]
     Indication: EPILEPSY
     Dosage: ORAL
     Route: 048
  2. RISPERDAL [Concomitant]
  3. DEPAKOTE [Concomitant]

REACTIONS (1)
  - DYSKINESIA [None]
